FAERS Safety Report 9542780 (Version 1)
Quarter: 2013Q3

REPORT INFORMATION
  Report Type: Spontaneous
  Country: US (occurrence: US)
  Receive Date: 20130923
  Receipt Date: 20130923
  Transmission Date: 20140515
  Serious: No
  Sender: FDA-Public Use
  Company Number: US-PFIZER INC-2013271310

PATIENT
  Age: 41 Year
  Sex: Male
  Weight: 65.76 kg

DRUGS (2)
  1. CELEBREX [Suspect]
     Dosage: UNK
  2. FLEXERIL [Interacting]
     Indication: MUSCLE RELAXANT THERAPY
     Dosage: UNK, AS NEEDED
     Dates: start: 201304

REACTIONS (2)
  - Drug interaction [Unknown]
  - Fatigue [Unknown]
